FAERS Safety Report 10063186 (Version 1)
Quarter: 2014Q2

REPORT INFORMATION
  Report Type: Spontaneous
  Country: US (occurrence: US)
  Receive Date: 20140407
  Receipt Date: 20140407
  Transmission Date: 20141212
  Serious: Yes (Hospitalization)
  Sender: FDA-Public Use
  Company Number: US-B.I. PHARMACEUTICALS,INC./RIDGEFIELD-2014-BI-14512BP

PATIENT
  Sex: Female

DRUGS (12)
  1. SPIRIVA [Suspect]
     Indication: BRONCHITIS CHRONIC
     Dosage: 18 MCG
     Route: 055
     Dates: start: 201305
  2. ALBUTEROL INH [Concomitant]
     Indication: ASTHMA
     Dosage: FORMULATION: INHALATION AEROSOL
     Route: 055
  3. ASPIRIN [Concomitant]
     Indication: PROPHYLAXIS
     Route: 048
  4. VITAMIN D [Concomitant]
     Indication: PROPHYLAXIS
     Route: 048
  5. LEXAPRO [Concomitant]
     Indication: DEPRESSION
     Dosage: 10 MG
     Route: 048
     Dates: start: 2012
  6. HYDROCHLOROTHIAZIDE [Concomitant]
     Indication: HYPERTENSION
     Dosage: 12.5 MG
     Route: 048
  7. LISINOPRIL [Concomitant]
     Indication: HYPERTENSION
     Dosage: 20 MG
     Route: 048
  8. MULTIVITAMIN [Concomitant]
     Indication: PROPHYLAXIS
     Route: 048
  9. SIMVASTATIN [Concomitant]
     Indication: BLOOD CHOLESTEROL INCREASED
     Route: 048
  10. FENTANYL PUMP [Concomitant]
     Indication: BACK PAIN
     Route: 050
     Dates: start: 2010
  11. FENTANYL PUMP [Concomitant]
     Indication: SPINAL COLUMN STENOSIS
  12. HYDROCODNE 10/325 [Concomitant]
     Indication: BACK PAIN
     Dosage: 4 ANZ
     Route: 065

REACTIONS (5)
  - Coronary artery occlusion [Recovered/Resolved]
  - Pruritus generalised [Not Recovered/Not Resolved]
  - Dry throat [Not Recovered/Not Resolved]
  - Dysphonia [Not Recovered/Not Resolved]
  - Off label use [Unknown]
